FAERS Safety Report 8475401-5 (Version None)
Quarter: 2012Q2

REPORT INFORMATION
  Report Type: 
  Country: None (occurrence: None)
  Receive Date: 20120628
  Receipt Date: 20120621
  Transmission Date: 20120825
  Serious: Yes (Hospitalization)
  Sender: FDA-Public Use
  Company Number: JP-ROCHE-1078661

PATIENT
  Age: 61 Year
  Sex: Female

DRUGS (4)
  1. TAXOTERE [Suspect]
     Indication: BREAST CANCER RECURRENT
     Dosage: FOUR COURSES
     Route: 041
  2. HERCEPTIN [Suspect]
     Indication: BREAST CANCER RECURRENT
     Route: 041
     Dates: start: 20120220, end: 20120220
  3. HERCEPTIN [Suspect]
     Route: 041
     Dates: start: 20120312, end: 20120611
  4. XELODA [Suspect]
     Indication: BREAST CANCER RECURRENT
     Dosage: IT IS ONE ADMINISTERING WEEKLY HOLIDAY MEDICINE FOR TWO WEEKS.
     Route: 048
     Dates: start: 20120220, end: 20120611

REACTIONS (1)
  - INTERSTITIAL LUNG DISEASE [None]
